FAERS Safety Report 5793394-6 (Version None)
Quarter: 2008Q2

REPORT INFORMATION
  Report Type: 
  Country: None (occurrence: None)
  Receive Date: 20080627
  Receipt Date: 20080620
  Transmission Date: 20081010
  Serious: Yes (Other)
  Sender: FDA-Public Use
  Company Number: CH-ROCHE-572140

PATIENT
  Age: 90 Year
  Sex: Male
  Weight: 51 kg

DRUGS (7)
  1. TOREM [Suspect]
     Indication: DRUG USE FOR UNKNOWN INDICATION
     Route: 048
     Dates: start: 20080519, end: 20080602
  2. CLEXANE [Interacting]
     Indication: DRUG USE FOR UNKNOWN INDICATION
     Dosage: FORM: VIAL
     Route: 058
     Dates: start: 20080528, end: 20080528
  3. SINTROM [Interacting]
     Indication: DRUG USE FOR UNKNOWN INDICATION
     Route: 048
     Dates: start: 20041029
  4. NEXIUM [Concomitant]
     Route: 048
     Dates: start: 20071213
  5. PRAVASTATIN [Concomitant]
     Route: 048
     Dates: start: 20041029
  6. FRAXIPARINE [Concomitant]
     Dates: start: 20041025, end: 20041101
  7. FUROSEMIDE [Concomitant]
     Dates: start: 20080503, end: 20080518

REACTIONS (2)
  - PETECHIAE [None]
  - PRURITUS [None]
